FAERS Safety Report 7940563-2 (Version None)
Quarter: 2011Q4

REPORT INFORMATION
  Report Type: 
  Country: None (occurrence: None)
  Receive Date: 20111114
  Receipt Date: 20110422
  Transmission Date: 20120403
  Serious: Yes (Death)
  Sender: FDA-Public Use
  Company Number: 2011S1000296

PATIENT
  Age: 65 Year
  Sex: Male

DRUGS (1)
  1. CUBICIN [Suspect]
     Indication: ENTEROCOCCAL BACTERAEMIA
     Dosage: 8.2 MG/KG; Q24H

REACTIONS (2)
  - PATHOGEN RESISTANCE [None]
  - DEATH [None]
